FAERS Safety Report 25639920 (Version 1)
Quarter: 2025Q3

REPORT INFORMATION
  Report Type: Report from Study
  Country: US (occurrence: US)
  Receive Date: 20250804
  Receipt Date: 20250804
  Transmission Date: 20251020
  Serious: No
  Sender: AURINIA PHARMACEUTICALS
  Company Number: US-AURINIA PHARMACEUTICALS INC.-AUR-009087

PATIENT
  Sex: Male

DRUGS (1)
  1. LUPKYNIS [Suspect]
     Active Substance: VOCLOSPORIN
     Indication: Lupus nephritis
     Dosage: 23.7MG BY MOUTH TWICE DAILY
     Route: 048
     Dates: start: 20250311

REACTIONS (3)
  - Throat irritation [Unknown]
  - Cough [Unknown]
  - Product dose omission in error [Unknown]
